FAERS Safety Report 8334373-4 (Version None)
Quarter: 2012Q2

REPORT INFORMATION
  Report Type: 
  Country: None (occurrence: None)
  Receive Date: 20120503
  Receipt Date: 20120430
  Transmission Date: 20120825
  Serious: Yes (Death, Other)
  Sender: FDA-Public Use
  Company Number: CN-ELI_LILLY_AND_COMPANY-CN201205000626

PATIENT
  Sex: Female

DRUGS (3)
  1. GEMCITABINE HYDROCHLORIDE [Suspect]
     Indication: BREAST CANCER METASTATIC
     Dosage: 1,000MG/M2
     Route: 042
  2. ANTI-NAUSEA [Concomitant]
     Indication: PROPHYLAXIS
  3. VINORELBINE [Concomitant]
     Indication: BREAST CANCER METASTATIC
     Dosage: 25MG/M2

REACTIONS (1)
  - GASTROINTESTINAL HAEMORRHAGE [None]
